FAERS Safety Report 10231199 (Version 1)
Quarter: 2014Q2

REPORT INFORMATION
  Report Type: Spontaneous
  Country: GB (occurrence: GB)
  Receive Date: 20140611
  Receipt Date: 20140611
  Transmission Date: 20141212
  Serious: Yes (Hospitalization, Disabling)
  Sender: FDA-Public Use
  Company Number: GB-TEVA-486817ISR

PATIENT
  Age: 57 Year
  Sex: Female
  Weight: 78.3 kg

DRUGS (5)
  1. DOXORUBICIN [Suspect]
     Indication: NON-HODGKIN^S LYMPHOMA
     Route: 042
     Dates: end: 20140401
  2. RITUXIMAB [Concomitant]
     Indication: NON-HODGKIN^S LYMPHOMA
     Dates: end: 20140401
  3. PREDNISOLONE [Concomitant]
     Indication: NON-HODGKIN^S LYMPHOMA
     Dates: end: 20140401
  4. VINCRISTINE [Concomitant]
     Indication: NON-HODGKIN^S LYMPHOMA
     Dates: end: 20140401
  5. CYCLOPHOSPHAMIDE [Concomitant]
     Indication: NON-HODGKIN^S LYMPHOMA
     Dates: end: 20140401

REACTIONS (9)
  - Cardiogenic shock [Unknown]
  - Sepsis [Unknown]
  - Cardiac failure [Not Recovered/Not Resolved]
  - Dyspnoea [Unknown]
  - Congestive cardiomyopathy [Unknown]
  - Left ventricular dysfunction [Unknown]
  - Cytotoxic cardiomyopathy [Unknown]
  - Cough [Unknown]
  - Malaise [Unknown]
